FAERS Safety Report 14402276 (Version 5)
Quarter: 2018Q1

REPORT INFORMATION
  Report Type: Report from Study
  Country: US (occurrence: US)
  Receive Date: 20180117
  Receipt Date: 20180328
  Transmission Date: 20180509
  Serious: Yes (Hospitalization)
  Sender: FDA-Public Use
  Company Number: US-BAYER-2018-000683

PATIENT
  Age: 58 Year
  Sex: Female

DRUGS (4)
  1. STIVARGA [Suspect]
     Active Substance: REGORAFENIB
     Indication: COLORECTAL CANCER METASTATIC
     Dosage: 80 MG, DAILY/ 3 WEEKS ON, ONE WEEK OFF
     Route: 048
     Dates: start: 20180116, end: 2018
  2. STIVARGA [Suspect]
     Active Substance: REGORAFENIB
     Indication: COLORECTAL CANCER METASTATIC
     Dosage: 120 MG DAILY 80 MG, DAILY/ 3 WEEKS ON, ONE WEEK OFF
     Route: 048
     Dates: start: 2018, end: 20180313
  3. STIVARGA [Suspect]
     Active Substance: REGORAFENIB
     Indication: COLORECTAL CANCER METASTATIC
     Dosage: 120 MG, DAILY/ 3 WEEKS ON, ONE WEEK OFF
     Route: 048
     Dates: start: 20180102, end: 20180108
  4. STIVARGA [Suspect]
     Active Substance: REGORAFENIB
     Indication: COLORECTAL CANCER METASTATIC
     Dosage: 80 MG, DAILY/ 3 WEEKS ON, ONE WEEK OFF
     Route: 048
     Dates: start: 20171226, end: 20180101

REACTIONS (18)
  - Chills [Recovered/Resolved]
  - Neuropathy peripheral [Unknown]
  - Diarrhoea [Recovering/Resolving]
  - Tumour associated fever [Recovered/Resolved]
  - Fatigue [None]
  - Asthenia [Not Recovered/Not Resolved]
  - Infection [Recovered/Resolved]
  - Off label use [None]
  - Decreased appetite [Recovering/Resolving]
  - Dehydration [Unknown]
  - Fatigue [Recovering/Resolving]
  - Nausea [None]
  - Pyrexia [Recovered/Resolved]
  - Exercise tolerance decreased [Recovering/Resolving]
  - Dizziness postural [None]
  - Decreased activity [None]
  - Dry mouth [Unknown]
  - Drug ineffective [None]
